FAERS Safety Report 24614641 (Version 1)
Quarter: 2024Q4

REPORT INFORMATION
  Report Type: Spontaneous
  Country: US (occurrence: US)
  Receive Date: 20241113
  Receipt Date: 20241113
  Transmission Date: 20250115
  Serious: No
  Sender: PFIZER
  Company Number: US-PFIZER INC-202400295832

PATIENT
  Age: 53 Year
  Sex: Female

DRUGS (1)
  1. CIBINQO [Suspect]
     Active Substance: ABROCITINIB

REACTIONS (5)
  - Oral discomfort [Unknown]
  - Tongue discomfort [Unknown]
  - Erythema [Unknown]
  - Nasal disorder [Unknown]
  - Nail discolouration [Recovering/Resolving]
